FAERS Safety Report 8560228-6 (Version None)
Quarter: 2012Q3

REPORT INFORMATION
  Report Type: 
  Country: None (occurrence: None)
  Receive Date: 20120802
  Receipt Date: 20120730
  Transmission Date: 20120928
  Serious: Yes (Life-Threatening, Hospitalization)
  Sender: FDA-Public Use
  Company Number: JP-PFIZER INC-2012154292

PATIENT
  Age: 58 Year
  Sex: Female

DRUGS (7)
  1. ALPRAZOLAM [Suspect]
     Indication: DEPRESSION
     Dosage: 0.4 MG, 3X/DAY
     Route: 048
     Dates: start: 20110515
  2. PAXIL [Suspect]
     Indication: DEPRESSION
     Dosage: 10 MG, 3X/DAY
     Route: 048
  3. FLUVOXAMINE MALEATE [Suspect]
     Indication: DEPRESSION
     Dosage: 75 MG, 3X/DAY
     Route: 048
     Dates: end: 20110514
  4. AKINETON [Suspect]
     Indication: DEPRESSION
     Dosage: 2 MG, 3X/DAY
     Route: 048
     Dates: start: 20110515
  5. ALPRAZOLAM [Suspect]
     Indication: DEPRESSION
     Dosage: 0.4 MG, 3X/DAY
     Route: 048
     Dates: end: 20110514
  6. LUVOX [Suspect]
     Indication: DEPRESSION
     Dosage: 75 MG, 3X/DAY
     Route: 048
     Dates: start: 20110515
  7. BIPERIDEN HYDROCHLORIDE TAB [Suspect]
     Indication: DEPRESSION
     Dosage: 2 MG, 3X/DAY
     Route: 048
     Dates: end: 20110514

REACTIONS (3)
  - SYNCOPE [None]
  - VENTRICULAR TACHYCARDIA [None]
  - TORSADE DE POINTES [None]
